FAERS Safety Report 5144906-7 (Version None)
Quarter: 2006Q4

REPORT INFORMATION
  Report Type: 
  Country: None (occurrence: None)
  Receive Date: 20061107
  Receipt Date: 20060704
  Transmission Date: 20070319
  Serious: Yes (Other)
  Sender: FDA-Public Use
  Company Number: PHBS2006DK10117

PATIENT
  Age: 45 Year
  Sex: Male

DRUGS (5)
  1. SANDIMMUNE [Suspect]
     Indication: RENAL TRANSPLANT
     Dosage: 150 MG, BID
     Route: 065
     Dates: start: 19990109, end: 20060707
  2. CELLCEPT [Concomitant]
     Dosage: 1 G, BID
  3. NORVASC [Concomitant]
     Dosage: 10 MG, QD
  4. ZESTRIL [Concomitant]
     Dosage: 5 MG, QD
  5. SELOZOK [Concomitant]
     Dosage: 50 MG, BID

REACTIONS (2)
  - COORDINATION ABNORMAL [None]
  - MENTAL DISORDER [None]
